FAERS Safety Report 18283186 (Version 1)
Quarter: 2020Q3

REPORT INFORMATION
  Report Type: Spontaneous
  Country: JP (occurrence: JP)
  Receive Date: 20200918
  Receipt Date: 20200918
  Transmission Date: 20201103
  Serious: Yes (Hospitalization)
  Sender: FDA-Public Use
  Company Number: JP-CIRCASSIA PHARMACEUTICALS INC-2020JP005295

PATIENT

DRUGS (2)
  1. EKLIRA [Suspect]
     Active Substance: ACLIDINIUM BROMIDE
     Indication: ALLERGIC BRONCHOPULMONARY MYCOSIS
     Dosage: UNK
     Route: 055
     Dates: start: 201709
  2. ALVESCO [Concomitant]
     Active Substance: CICLESONIDE
     Indication: PRODUCT USED FOR UNKNOWN INDICATION
     Dosage: 200 UG, DAILY
     Route: 055
     Dates: start: 201801

REACTIONS (2)
  - Pneumonia [Unknown]
  - Device failure [Unknown]

NARRATIVE: CASE EVENT DATE: 20200823
